FAERS Safety Report 7999655-4 (Version None)
Quarter: 2011Q4

REPORT INFORMATION
  Report Type: 
  Country: None (occurrence: None)
  Receive Date: 20111221
  Receipt Date: 20111212
  Transmission Date: 20120403
  Serious: Yes (Hospitalization)
  Sender: FDA-Public Use
  Company Number: BR-ASTRAZENECA-2011SE29764

PATIENT
  Age: 62 Year
  Sex: Male
  Weight: 89 kg

DRUGS (5)
  1. ATACAND [Suspect]
     Indication: HYPERTENSION
     Route: 048
     Dates: start: 20080101
  2. ATACAND HCT [Suspect]
     Route: 048
  3. ATACAND HCT [Suspect]
     Indication: HYPERTENSION
     Dosage: 16/5 MG
     Route: 048
  4. ATACAND HCT [Suspect]
     Indication: HYPERTENSION
     Dosage: 8/12.5 MG
     Route: 048
  5. ATACAND [Suspect]
     Route: 048
     Dates: start: 20110401

REACTIONS (6)
  - ARTERIOSCLEROSIS CORONARY ARTERY [None]
  - URINE OUTPUT DECREASED [None]
  - OEDEMA PERIPHERAL [None]
  - CHEST PAIN [None]
  - DRUG DISPENSING ERROR [None]
  - WEIGHT DECREASED [None]
